FAERS Safety Report 23988803 (Version 1)
Quarter: 2024Q2

REPORT INFORMATION
  Report Type: Spontaneous
  Country: US (occurrence: US)
  Receive Date: 20240619
  Receipt Date: 20240619
  Transmission Date: 20240715
  Serious: No
  Sender: FDA-Public Use
  Company Number: US-DAIICHI SANKYO, INC.-DSU-2024-127003AA

PATIENT
  Sex: Male

DRUGS (2)
  1. TURALIO [Suspect]
     Active Substance: PEXIDARTINIB HYDROCHLORIDE
     Indication: Connective tissue neoplasm
     Dosage: 250 MG, BID
     Route: 048
     Dates: start: 20240601
  2. TURALIO [Suspect]
     Active Substance: PEXIDARTINIB HYDROCHLORIDE
     Indication: Soft tissue neoplasm

REACTIONS (1)
  - Sunburn [Not Recovered/Not Resolved]
